FAERS Safety Report 4346033-5 (Version None)
Quarter: 2004Q1

REPORT INFORMATION
  Report Type: 
  Country: None (occurrence: None)
  Receive Date: 20040325
  Receipt Date: 20031125
  Transmission Date: 20041129
  Serious: No
  Sender: FDA-Public Use
  Company Number: USA030845780

PATIENT
  Age: 56 Year
  Sex: Female
  Weight: 52 kg

DRUGS (7)
  1. FORTEO [Suspect]
     Indication: FALL
     Dosage: 20 UG/DAY
     Dates: start: 20030821
  2. FORTEO [Suspect]
     Indication: OSTEOPOROSIS
     Dosage: 20 UG/DAY
     Dates: start: 20030821
  3. PREMARIN [Concomitant]
  4. ATIVAN [Concomitant]
  5. TRIAVIL [Concomitant]
  6. EFFEXOR [Concomitant]
  7. PREDNISONE [Concomitant]

REACTIONS (9)
  - ASTHENIA [None]
  - CONTUSION [None]
  - DIARRHOEA [None]
  - FATIGUE [None]
  - HYPERHIDROSIS [None]
  - NAUSEA [None]
  - NERVOUSNESS [None]
  - POLLAKIURIA [None]
  - SLUGGISHNESS [None]
